FAERS Safety Report 25525374 (Version 1)
Quarter: 2025Q3

REPORT INFORMATION
  Report Type: Spontaneous
  Country: US (occurrence: US)
  Receive Date: 20250707
  Receipt Date: 20250707
  Transmission Date: 20251020
  Serious: No
  Sender: NOVO NORDISK
  Company Number: US-NOVOPROD-1420697

PATIENT
  Age: 26 Year

DRUGS (1)
  1. ALHEMO [Suspect]
     Active Substance: CONCIZUMAB-MTCI
     Indication: Product used for unknown indication
     Route: 058
     Dates: start: 20250422

REACTIONS (3)
  - Abdominal pain upper [Not Recovered/Not Resolved]
  - Back pain [Not Recovered/Not Resolved]
  - Injection site pain [Recovered/Resolved]

NARRATIVE: CASE EVENT DATE: 20250422
